FAERS Safety Report 8573687-X (Version None)
Quarter: 2012Q3

REPORT INFORMATION
  Report Type: 
  Country: None (occurrence: None)
  Receive Date: 20120806
  Receipt Date: 20120730
  Transmission Date: 20120928
  Serious: Yes (Life-Threatening, Hospitalization)
  Sender: FDA-Public Use
  Company Number: US-GLAXOSMITHKLINE-A0958665A

PATIENT
  Age: 59 Year
  Sex: Female
  Weight: 54 kg

DRUGS (3)
  1. COUMADIN [Suspect]
     Indication: PRODUCT USED FOR UNKNOWN INDICATION
  2. DOBUTAMINE [Concomitant]
     Route: 042
  3. FLOLAN [Suspect]
     Indication: HEART DISEASE CONGENITAL
     Dosage: 32NGKM UNKNOWN
     Route: 042
     Dates: start: 20110510

REACTIONS (4)
  - PULMONARY ARTERY THROMBOSIS [None]
  - PROCEDURAL COMPLICATION [None]
  - TREATMENT NONCOMPLIANCE [None]
  - OFF LABEL USE [None]
